FAERS Safety Report 15532921 (Version 1)
Quarter: 2018Q4

REPORT INFORMATION
  Report Type: Spontaneous
  Country: JP (occurrence: JP)
  Receive Date: 20181019
  Receipt Date: 20181019
  Transmission Date: 20190205
  Serious: Yes (Hospitalization, Other)
  Sender: FDA-Public Use
  Company Number: JP-BRISTOL-MYERS SQUIBB COMPANY-BMS-2018-056680

PATIENT
  Age: 68 Year
  Sex: Male

DRUGS (1)
  1. OPDIVO [Suspect]
     Active Substance: NIVOLUMAB
     Indication: NON-SMALL CELL LUNG CANCER
     Dosage: 3 MG/KG, Q2WK, PER DAY
     Route: 041
     Dates: start: 20180425

REACTIONS (4)
  - Lung infection [Unknown]
  - Malignant pleural effusion [Not Recovered/Not Resolved]
  - Pneumonia [Recovering/Resolving]
  - Pleural fistula [Not Recovered/Not Resolved]

NARRATIVE: CASE EVENT DATE: 2018
